FAERS Safety Report 16248095 (Version 1)
Quarter: 2019Q2

REPORT INFORMATION
  Report Type: Other
  Country: None (occurrence: US)
  Receive Date: 20190428
  Receipt Date: 20190428
  Transmission Date: 20190711
  Serious: Yes (Life-Threatening, Hospitalization)
  Sender: FDA-Public Use
  Company Number: US-C B FLEET CO INC-201904-US-001016

PATIENT
  Age: 87 Year
  Sex: Female

DRUGS (1)
  1. DIPHENHYDRAMINE HCL [Suspect]
     Active Substance: DIPHENHYDRAMINE HYDROCHLORIDE
     Indication: PRODUCT USED FOR UNKNOWN INDICATION
     Dosage: OVERDOSED ON AT LEAST 25 PILLS
     Route: 048

REACTIONS (3)
  - Electrocardiogram QT prolonged [Unknown]
  - Torsade de pointes [Unknown]
  - Overdose [None]
